FAERS Safety Report 22096817 (Version 1)
Quarter: 2023Q1

REPORT INFORMATION
  Report Type: Report from Study
  Country: GB (occurrence: GB)
  Receive Date: 20230315
  Receipt Date: 20230315
  Transmission Date: 20230417
  Serious: Yes (Hospitalization)
  Sender: FDA-Public Use
  Company Number: GB-CELLTRION INC.-2023GB001302

PATIENT
  Age: 69 Year
  Sex: Female
  Weight: 77.1 kg

DRUGS (10)
  1. RITUXIMAB [Suspect]
     Active Substance: RITUXIMAB
     Indication: Extranodal marginal zone B-cell lymphoma (MALT type)
     Dosage: 375 MG/M2 (700 MG) (WEEKLY FOR CYCLE 1 THEN DAY 1 OF CYCLES 2 TO 5)
     Route: 042
     Dates: start: 20220714
  2. RITUXIMAB [Suspect]
     Active Substance: RITUXIMAB
     Dosage: 700 MILLIGRAM, MONTHLY (LAST DOSE BEFORE SAE: 08SEP2022)
     Route: 042
     Dates: start: 20220608
  3. RITUXIMAB [Suspect]
     Active Substance: RITUXIMAB
     Dosage: 375 MG/M2 (700 MG) (WEEKLY FOR CYCLE 1 THEN DAY 1 OF CYCLES 2 TO 5)
     Route: 042
     Dates: start: 20220608
  4. LENALIDOMIDE [Suspect]
     Active Substance: LENALIDOMIDE
     Indication: Extranodal marginal zone B-cell lymphoma (MALT type)
     Route: 048
     Dates: start: 20220811
  5. LENALIDOMIDE [Suspect]
     Active Substance: LENALIDOMIDE
     Dosage: 20 MILLIGRAM, DAILY DAYS 1 TO 21 OF EACH 28-DAY CYCLE FOR CYCLES 1 TO 12)
     Route: 048
     Dates: start: 20220607, end: 20220727
  6. LENALIDOMIDE [Suspect]
     Active Substance: LENALIDOMIDE
     Dosage: (LAST DOSE BEFORE SAE: 04OCT2022)
     Route: 048
     Dates: start: 20220607
  7. TAFASITAMAB-CXIX [Suspect]
     Active Substance: TAFASITAMAB-CXIX
     Indication: Extranodal marginal zone B-cell lymphoma (MALT type)
     Dosage: 12 MG/KG (924 MG) (WEEKLY FOR CYCLES 1 TO 3, THEN ON DAYS 1 AND 15 FOR CYCLES 4 TO 12)
     Route: 042
     Dates: start: 20220804
  8. TAFASITAMAB-CXIX [Suspect]
     Active Substance: TAFASITAMAB-CXIX
     Dosage: 12 MG/KG (924 MG) (WEEKLY FOR CYCLES 1 TO 3, THEN ON DAYS 1 AND 15 FOR CYCLES 4 TO 12)
     Route: 042
     Dates: start: 20220607, end: 20220727
  9. CARBOCYSTEINE [Concomitant]
     Active Substance: CARBOCYSTEINE
     Dosage: UNK
     Dates: start: 2004
  10. TIOTROPIUM BROMIDE [Concomitant]
     Active Substance: TIOTROPIUM BROMIDE
     Dosage: UNK
     Dates: start: 2004

REACTIONS (2)
  - Anaemia [Recovered/Resolved]
  - Influenza [Recovered/Resolved]

NARRATIVE: CASE EVENT DATE: 20220721
